FAERS Safety Report 10071411 (Version 1)
Quarter: 2014Q2

REPORT INFORMATION
  Report Type: Spontaneous
  Country: US (occurrence: US)
  Receive Date: 20140410
  Receipt Date: 20140410
  Transmission Date: 20141212
  Serious: Yes (Hospitalization)
  Sender: FDA-Public Use
  Company Number: PHHY2014US040926

PATIENT
  Age: 34 Year
  Sex: Female

DRUGS (7)
  1. SALBUTAMOL [Suspect]
     Indication: BRONCHITIS
     Dosage: 90 MG, UNK
     Route: 055
  2. SALBUTAMOL [Suspect]
     Dosage: 2.5 MG, UNK
     Route: 055
  3. CEFIXIME [Concomitant]
     Indication: BRONCHITIS
     Dosage: 400 MG, QD
     Route: 048
  4. FLUOXETINE [Concomitant]
     Dosage: 20 MG, QD
  5. AMITRIPTYLINE [Concomitant]
     Dosage: 10 MG, QD
  6. DAILY MULTIVITAMIN [Concomitant]
  7. METHYLPREDNISOLONE [Concomitant]
     Indication: BRONCHITIS
     Dosage: 4 MG, UNK

REACTIONS (7)
  - Paralysis [Recovered/Resolved]
  - Pain in extremity [Recovered/Resolved]
  - Muscular weakness [Recovered/Resolved]
  - Hypoaesthesia [Recovered/Resolved]
  - Muscle spasms [Recovered/Resolved]
  - Tachycardia [Recovered/Resolved]
  - Hypokalaemia [Recovered/Resolved]
